FAERS Safety Report 5816512-X (Version None)
Quarter: 2008Q3

REPORT INFORMATION
  Report Type: 
  Country: None (occurrence: None)
  Receive Date: 20080717
  Receipt Date: 20080717
  Transmission Date: 20090109
  Serious: Yes (Other)
  Sender: FDA-Public Use
  Company Number: None

PATIENT
  Sex: Male
  Weight: 97.5234 kg

DRUGS (1)
  1. LEVAQUIN [Suspect]
     Indication: BRONCHITIS
     Dosage: 1 DAILY DAILY PO
     Route: 048
     Dates: start: 20080517, end: 20080521

REACTIONS (5)
  - EMBOLISM [None]
  - INFECTION [None]
  - OEDEMA [None]
  - TENDON DISORDER [None]
  - TENDON INJURY [None]
